FAERS Safety Report 9835526 (Version 2)
Quarter: 2014Q1

REPORT INFORMATION
  Report Type: Spontaneous
  Country: US (occurrence: US)
  Receive Date: 20140122
  Receipt Date: 20140122
  Transmission Date: 20141002
  Serious: No
  Sender: FDA-Public Use
  Company Number: US-BRISTOL-MYERS SQUIBB COMPANY-19779453

PATIENT
  Age: 81 Year
  Sex: Female
  Weight: 55.33 kg

DRUGS (8)
  1. ELIQUIS [Suspect]
     Indication: ATRIAL FIBRILLATION
     Dosage: ON 17THNOV13 ALSO
     Route: 048
     Dates: start: 20131027
  2. ELIQUIS [Suspect]
     Indication: PALPITATIONS
     Dosage: ON 17THNOV13 ALSO
     Route: 048
     Dates: start: 20131027
  3. TRIAMTERENE + HCTZ [Concomitant]
     Dosage: 1DF=37.5/HCTZ 25 MG
  4. PREMARIN [Concomitant]
  5. ATENOLOL [Concomitant]
  6. POTASSIUM [Concomitant]
     Dosage: 1DF=POTASSIUM CL 10 MEQ
  7. FLECAINIDE [Concomitant]
  8. LEVOTHYROXINE [Concomitant]

REACTIONS (5)
  - Wrong technique in drug usage process [Unknown]
  - Somnolence [Unknown]
  - Dizziness [Not Recovered/Not Resolved]
  - Energy increased [Unknown]
  - Headache [Unknown]
